FAERS Safety Report 5425202-7 (Version None)
Quarter: 2007Q3

REPORT INFORMATION
  Report Type: 
  Country: None (occurrence: None)
  Receive Date: 20070824
  Receipt Date: 20070813
  Transmission Date: 20080115
  Serious: Yes (Other)
  Sender: FDA-Public Use
  Company Number: B0464894A

PATIENT
  Age: 56 Year
  Sex: Female
  Weight: 56 kg

DRUGS (3)
  1. PANADOL [Suspect]
     Dosage: 1500MG PER DAY
     Route: 048
     Dates: start: 20070212
  2. HOMEOPATHIC MEDICATION [Suspect]
  3. IBUPROFEN [Concomitant]
     Indication: HEADACHE
     Dosage: 200MG PER DAY
     Route: 048
     Dates: start: 20070323

REACTIONS (1)
  - HYPERTENSIVE CRISIS [None]
